FAERS Safety Report 4848629-0 (Version None)
Quarter: 2005Q4

REPORT INFORMATION
  Report Type: 
  Country: None (occurrence: None)
  Receive Date: 20051206
  Receipt Date: 20051123
  Transmission Date: 20060501
  Serious: Yes (Other)
  Sender: FDA-Public Use
  Company Number: 2005150215

PATIENT
  Age: 66 Year
  Sex: Male
  Weight: 77 kg

DRUGS (8)
  1. ZYVOXID TABLET (LINEZOLID) [Suspect]
     Indication: ARTHRITIS BACTERIAL
     Dosage: 12000 MG (600 MG, 2 IN 1 D), ORAL
     Route: 048
     Dates: start: 20051026, end: 20051109
  2. RIFADIN [Suspect]
     Indication: ARTHRITIS BACTERIAL
     Dosage: 1800 MG (600 MG, 3 IN 1 D), ORAL
     Route: 048
     Dates: start: 20051026, end: 20051109
  3. MORPHINE SULFATE [Concomitant]
  4. MORPHINE SULFATE [Concomitant]
  5. CEFAZOLIN [Concomitant]
  6. GENTAMICIN [Concomitant]
  7. PEFLACINE (PEFLOXACIN MESILATE) [Concomitant]
  8. RIFADIN [Concomitant]

REACTIONS (2)
  - RENAL FAILURE ACUTE [None]
  - THERAPY NON-RESPONDER [None]
